FAERS Safety Report 10041692 (Version 4)
Quarter: 2014Q2

REPORT INFORMATION
  Report Type: Spontaneous
  Country: US (occurrence: US)
  Receive Date: 20140327
  Receipt Date: 20140519
  Transmission Date: 20141212
  Serious: No
  Sender: FDA-Public Use
  Company Number: US-PFIZER INC-2014083456

PATIENT
  Age: 80 Year
  Sex: Male
  Weight: 81.63 kg

DRUGS (5)
  1. JUNIOR STRENGTH ADVIL [Suspect]
     Indication: PAIN
     Dosage: 2 TABLETS, EVERY 4-6 HOURS
     Dates: start: 20140317
  2. JUNIOR STRENGTH ADVIL [Suspect]
     Indication: SWELLING
     Dosage: 4 TABLETS, EVERY 4-6 HOURS
     Dates: start: 20140318
  3. JUNIOR STRENGTH ADVIL [Suspect]
     Dosage: 2 TABLETS, EVERY 4-6 HOURS
     Dates: start: 20140319
  4. AMLODIPINE [Concomitant]
     Indication: HYPERTENSION
     Dosage: UNK
  5. LOSARTAN POTASSIUM [Concomitant]
     Indication: HYPERTENSION
     Dosage: UNK

REACTIONS (2)
  - Extra dose administered [Unknown]
  - Diarrhoea [Not Recovered/Not Resolved]
